FAERS Safety Report 6274554-7 (Version None)
Quarter: 2009Q3

REPORT INFORMATION
  Report Type: 
  Country: None (occurrence: None)
  Receive Date: 20090720
  Receipt Date: 20090617
  Transmission Date: 20100115
  Serious: Yes (Death, Other)
  Sender: FDA-Public Use
  Company Number: NZ-AVENTIS-200916861GDDC

PATIENT
  Age: 71 Year
  Sex: Male

DRUGS (4)
  1. LEFLUNOMIDE [Suspect]
     Route: 048
     Dates: start: 20011224, end: 20020101
  2. FELODIPINE [Concomitant]
     Route: 048
     Dates: end: 20021124
  3. BENDROFLUAZIDE [Concomitant]
     Route: 048
     Dates: end: 20021124
  4. METHOTREXATE [Concomitant]
     Route: 048
     Dates: end: 20021124

REACTIONS (5)
  - BRONCHITIS [None]
  - HYPERTENSION [None]
  - MYOCARDIAL INFARCTION [None]
  - OEDEMA PERIPHERAL [None]
  - PULMONARY OEDEMA [None]
